FAERS Safety Report 12885787 (Version 1)
Quarter: 2016Q4

REPORT INFORMATION
  Report Type: Spontaneous
  Country: GB (occurrence: GB)
  Receive Date: 20161026
  Receipt Date: 20161026
  Transmission Date: 20170207
  Serious: Yes (Other)
  Sender: FDA-Public Use
  Company Number: GB-B. BRAUN MEDICAL INC.-1058856

PATIENT
  Age: 48 Year
  Sex: Female
  Weight: 74 kg

DRUGS (15)
  1. AMITRIPTYLINE HYDROCHLORIDE. [Concomitant]
     Active Substance: AMITRIPTYLINE HYDROCHLORIDE
     Dates: start: 20160331
  2. DOCUSATE SODIUM. [Concomitant]
     Active Substance: DOCUSATE SODIUM
     Route: 065
     Dates: start: 20160902
  3. FENTANYL. [Concomitant]
     Active Substance: FENTANYL
     Dates: start: 20160824
  4. OXYNORM [Concomitant]
     Active Substance: OXYCODONE HYDROCHLORIDE
     Dates: start: 20160810, end: 20160907
  5. PREGABALIN. [Concomitant]
     Active Substance: PREGABALIN
     Dates: start: 20160331
  6. LEVOMEPROMAZINE [Concomitant]
     Active Substance: LEVOMEPROMAZINE
     Route: 058
     Dates: start: 20160830
  7. METRONIDAZOLE. [Suspect]
     Active Substance: METRONIDAZOLE
     Dates: start: 20160903
  8. FENCINO [Concomitant]
     Route: 065
     Dates: start: 20160810, end: 20160907
  9. HALOPERIDOL. [Concomitant]
     Active Substance: HALOPERIDOL
     Dates: start: 20160901
  10. URSODEOXYCHOLIC ACID [Concomitant]
     Active Substance: URSODIOL
     Dates: start: 20160810
  11. CYCLIZINE [Concomitant]
     Active Substance: CYCLIZINE
     Dates: start: 20160902, end: 20160903
  12. LANSOPRAZOLE. [Concomitant]
     Active Substance: LANSOPRAZOLE
     Dates: start: 20160331
  13. WATER FOR INJECTIONS [Concomitant]
     Active Substance: WATER
     Dates: start: 20160901
  14. ANASTROZOLE. [Concomitant]
     Active Substance: ANASTROZOLE
     Dates: start: 20160812
  15. MORPHINE SULFATE. [Concomitant]
     Active Substance: MORPHINE SULFATE
     Dates: start: 20160901

REACTIONS (2)
  - Rash macular [Unknown]
  - Hypersensitivity [Unknown]

NARRATIVE: CASE EVENT DATE: 20160909
